FAERS Safety Report 8477063-X (Version None)
Quarter: 2012Q2

REPORT INFORMATION
  Report Type: 
  Country: None (occurrence: None)
  Receive Date: 20120629
  Receipt Date: 20120627
  Transmission Date: 20120825
  Serious: No
  Sender: FDA-Public Use
  Company Number: US-PFIZER INC-2012155133

PATIENT
  Sex: Female

DRUGS (2)
  1. SERTRALINE HYDROCHLORIDE [Suspect]
     Dosage: 25 MG, FOR 5 DAYS
  2. SERTRALINE HYDROCHLORIDE [Suspect]
     Dosage: 50 MG, UNK

REACTIONS (5)
  - DIZZINESS [None]
  - HEADACHE [None]
  - PREMENSTRUAL SYNDROME [None]
  - OBSESSIVE-COMPULSIVE DISORDER [None]
  - FEELING ABNORMAL [None]
